FAERS Safety Report 16213711 (Version 2)
Quarter: 2019Q2

REPORT INFORMATION
  Report Type: Spontaneous
  Country: US (occurrence: US)
  Receive Date: 20190418
  Receipt Date: 20190610
  Transmission Date: 20190711
  Serious: Yes (Life-Threatening, Other)
  Sender: FDA-Public Use
  Company Number: US-PFIZER INC-2018486636

PATIENT
  Age: 69 Year
  Sex: Male
  Weight: 74.84 kg

DRUGS (4)
  1. VFEND [Suspect]
     Active Substance: VORICONAZOLE
     Indication: GRAFT INFECTION
     Dosage: 100 MG, 2X/DAY (TWO TABLET BY MOUTH TWICE A DAY)
     Route: 048
  2. VFEND [Suspect]
     Active Substance: VORICONAZOLE
     Dosage: 300 MG, 2X/DAY
  3. VFEND [Suspect]
     Active Substance: VORICONAZOLE
     Indication: FUNGAL INFECTION
     Dosage: 200 MG, 2X/DAY (TAKE 1 TABLET BY MOUTH TWICE A DAY)
     Route: 048
  4. VFEND [Suspect]
     Active Substance: VORICONAZOLE
     Dosage: UNK, 2X/DAY (ONE IS 200MG AND THE OTHER ONE IS 50. ONCE IN THE MORNING AND ONCE AT NIGHT)

REACTIONS (6)
  - Abdominal pain upper [Unknown]
  - Off label use [Unknown]
  - Product use issue [Unknown]
  - Memory impairment [Unknown]
  - Gait inability [Unknown]
  - Cerebral haemorrhage [Unknown]
